FAERS Safety Report 21831177 (Version 1)
Quarter: 2023Q1

REPORT INFORMATION
  Report Type: Report from Study
  Country: CA (occurrence: CA)
  Receive Date: 20230106
  Receipt Date: 20230106
  Transmission Date: 20230417
  Serious: Yes (Other)
  Sender: FDA-Public Use
  Company Number: CA-PFIZER INC-202300003114

PATIENT
  Sex: Female

DRUGS (3)
  1. METHOTREXATE SODIUM [Suspect]
     Active Substance: METHOTREXATE SODIUM
     Route: 065
  2. RINVOQ [Suspect]
     Active Substance: UPADACITINIB
     Indication: Rheumatoid arthritis
     Dosage: 15 MG, DAILY
     Route: 048
  3. RINVOQ [Suspect]
     Active Substance: UPADACITINIB
     Dosage: UNK
     Route: 048

REACTIONS (6)
  - Acne [Not Recovered/Not Resolved]
  - Carpal tunnel syndrome [Not Recovered/Not Resolved]
  - Fatigue [Not Recovered/Not Resolved]
  - Hypoaesthesia [Not Recovered/Not Resolved]
  - Osteoarthritis [Not Recovered/Not Resolved]
  - Pain in extremity [Not Recovered/Not Resolved]
